FAERS Safety Report 5576049-2 (Version None)
Quarter: 2007Q4

REPORT INFORMATION
  Report Type: 
  Country: None (occurrence: None)
  Receive Date: 20071228
  Receipt Date: 20071221
  Transmission Date: 20080405
  Serious: Yes (Other)
  Sender: FDA-Public Use
  Company Number: US-JNJFOC-20071205694

PATIENT
  Age: 40 Year
  Sex: Female
  Weight: 90.72 kg

DRUGS (8)
  1. TYLENOL (CAPLET) [Suspect]
  2. TYLENOL (CAPLET) [Suspect]
     Indication: ARTHRITIS
     Dosage: 1300 MG IN AM AND 650 IN PM
  3. METHADONE HCL [Concomitant]
     Indication: PAIN
  4. XANAX [Concomitant]
     Indication: ANTIDEPRESSANT THERAPY
  5. IMIPRAMINE [Concomitant]
     Indication: NERVOUSNESS
  6. NAPROXEN [Concomitant]
     Indication: RHEUMATOID ARTHRITIS
  7. CLONIDINE [Concomitant]
     Indication: HYPERTENSION
  8. LASIX [Concomitant]
     Indication: DIURETIC THERAPY

REACTIONS (5)
  - BREAST ENGORGEMENT [None]
  - BREAST PAIN [None]
  - INGROWN HAIR [None]
  - OPEN WOUND [None]
  - SCRATCH [None]
